FAERS Safety Report 11799657 (Version 2)
Quarter: 2016Q3

REPORT INFORMATION
  Report Type: Report from Study
  Country: US (occurrence: US)
  Receive Date: 20151203
  Receipt Date: 20160920
  Transmission Date: 20161109
  Serious: Yes (Other)
  Sender: FDA-Public Use
  Company Number: US-TEVA-612996USA

PATIENT
  Age: 70 Year
  Sex: Male

DRUGS (23)
  1. METHOTREXATE. [Suspect]
     Active Substance: METHOTREXATE
     Dosage: CYCLE 1 DAY 1 AND CYCLE 2 DAY 2
     Route: 037
     Dates: start: 20141205, end: 20150107
  2. CYTARABINE. [Suspect]
     Active Substance: CYTARABINE
     Dosage: CYCLE 1 DAY 7
     Route: 037
     Dates: start: 20141205, end: 20150126
  3. ASPIRIN. [Concomitant]
     Active Substance: ASPIRIN
     Dosage: 81 MILLIGRAM DAILY;
     Route: 048
  4. LASIX [Concomitant]
     Active Substance: FUROSEMIDE
     Dosage: 20 MILLIGRAM DAILY;
     Route: 048
  5. METHOTREXATE. [Suspect]
     Active Substance: METHOTREXATE
     Dosage: 200MG/M2 OVER 22 HOURS ON CYCLE 2 DAY 1
     Route: 042
     Dates: start: 20150106, end: 20150108
  6. LANTUS [Concomitant]
     Active Substance: INSULIN GLARGINE
     Dosage: 20 IU (INTERNATIONAL UNIT) DAILY;
     Route: 058
  7. PROTONIX [Concomitant]
     Active Substance: PANTOPRAZOLE SODIUM
     Dosage: 40 MILLIGRAM DAILY;
     Route: 048
  8. POTASSIUM CHLORIDE. [Concomitant]
     Active Substance: POTASSIUM CHLORIDE
     Dosage: 40 MILLIEQUIVALENTS DAILY; 15 CC
  9. SPIRONOLACTONE. [Concomitant]
     Active Substance: SPIRONOLACTONE
     Dosage: 25 MILLIGRAM DAILY;
     Route: 048
  10. LNOTUZUMAB OZOGAMICIN [Suspect]
     Active Substance: INOTUZUMAB OZOGAMICIN
     Dosage: ON CYCLE 1 DAY 3
     Route: 042
     Dates: start: 20141207, end: 20141207
  11. VINCRISTINE [Suspect]
     Active Substance: VINCRISTINE
     Dosage: DAYS 1
     Route: 042
     Dates: start: 20141205, end: 20150126
  12. LNOTUZUMAB OZOGAMICIN [Suspect]
     Active Substance: INOTUZUMAB OZOGAMICIN
     Dosage: CYCLIC ON CYCLE 2 DAY 3
     Route: 042
     Dates: start: 20150109, end: 20150109
  13. RITUXIMAB [Suspect]
     Active Substance: RITUXIMAB
     Dosage: CYCLE 2 DAYS 2 AND 7
     Route: 042
  14. CYCLOPHOSPHAMIDE. [Suspect]
     Active Substance: CYCLOPHOSPHAMIDE
     Dosage: 300 MG/M2 DAILY; DAYS 1-4
     Route: 042
     Dates: start: 20141205, end: 20150126
  15. METHOTREXATE. [Suspect]
     Active Substance: METHOTREXATE
     Dosage: OVER 2 HOURS ON DAY 1 CYCLE 2 DAY 1
     Route: 042
     Dates: start: 20150106, end: 20150106
  16. INSULIN REGULAR [Concomitant]
     Active Substance: INSULIN NOS
     Dosage: 300 IU (INTERNATIONAL UNIT) DAILY;
     Route: 058
  17. LEXAPRO [Concomitant]
     Active Substance: ESCITALOPRAM OXALATE
     Dosage: 10 MILLIGRAM DAILY;
     Route: 048
  18. MESNA. [Suspect]
     Active Substance: MESNA
     Dosage: DAYS 1-3
     Route: 042
     Dates: start: 20141205, end: 20150126
  19. CYTARABINE. [Suspect]
     Active Substance: CYTARABINE
     Dosage: 1 MG/M2 DAILY; ON DAYS 2 AND 3
     Route: 042
     Dates: start: 20150107, end: 20150110
  20. FLOMAX [Concomitant]
     Active Substance: TAMSULOSIN HYDROCHLORIDE
  21. METHYLPREDNISOLONE. [Suspect]
     Active Substance: METHYLPREDNISOLONE
     Dosage: 80 MILLIGRAM DAILY; DAYS 1-3
     Route: 042
     Dates: start: 20150106, end: 20150109
  22. RITUXIMAB [Suspect]
     Active Substance: RITUXIMAB
     Dosage: 375MG/M2 ON DAYS 2 AND 8, 375MG/M2 ON DAYS 2 AND 7, CYCLIC
     Route: 042
     Dates: start: 20141206, end: 20150112
  23. ALBUTEROL W/IPRATROPIUM [Concomitant]
     Active Substance: ALBUTEROL\IPRATROPIUM
     Indication: DYSPNOEA
     Dosage: 3 CUBIC CENTIMETERS
     Route: 055

REACTIONS (1)
  - Venoocclusive liver disease [Not Recovered/Not Resolved]

NARRATIVE: CASE EVENT DATE: 20150318
